FAERS Safety Report 9167117 (Version 2)
Quarter: 2013Q1

REPORT INFORMATION
  Report Type: Spontaneous
  Country: US (occurrence: US)
  Receive Date: 20130318
  Receipt Date: 20130327
  Transmission Date: 20140127
  Serious: Yes (Death)
  Sender: FDA-Public Use
  Company Number: US-BIOGENIDEC-2013BI022868

PATIENT
  Sex: Female

DRUGS (5)
  1. TYSABRI [Suspect]
     Indication: MULTIPLE SCLEROSIS
     Route: 042
     Dates: start: 20110930
  2. GEODON [Concomitant]
  3. SEROQUEL [Concomitant]
  4. LEXAPRO [Concomitant]
  5. KLONOPIN [Concomitant]

REACTIONS (1)
  - Death [Fatal]
